FAERS Safety Report 9045677 (Version 1)
Quarter: 2013Q1

REPORT INFORMATION
  Report Type: Report from Study
  Country: US (occurrence: US)
  Receive Date: 20130131
  Receipt Date: 20130131
  Transmission Date: 20140127
  Serious: No
  Sender: FDA-Public Use
  Company Number: US-ABBOTT-12P-163-1007562-00

PATIENT
  Age: 47 Year
  Sex: Female

DRUGS (16)
  1. HUMIRA [Suspect]
     Indication: CROHN^S DISEASE
     Dosage: LOADING DOSE
     Dates: start: 20121109
  2. ATENOLOL [Concomitant]
     Indication: BLOOD PRESSURE
  3. NORVASC [Concomitant]
     Indication: BLOOD PRESSURE
  4. ASACOL [Concomitant]
     Indication: CROHN^S DISEASE
  5. FLEXERIL [Concomitant]
     Indication: RESTLESS LEGS SYNDROME
  6. ZOLOFT [Concomitant]
     Indication: ANXIETY
  7. PRILOSEC [Concomitant]
     Indication: PRODUCT USED FOR UNKNOWN INDICATION
  8. ZYRTEC [Concomitant]
     Indication: HYPERSENSITIVITY
  9. PREDNISONE [Concomitant]
     Indication: PRODUCT USED FOR UNKNOWN INDICATION
  10. IMURAN [Concomitant]
     Indication: PRODUCT USED FOR UNKNOWN INDICATION
  11. PHENERGAN [Concomitant]
     Indication: NAUSEA
  12. FISH OIL [Concomitant]
     Indication: PRODUCT USED FOR UNKNOWN INDICATION
  13. CALCIUM [Concomitant]
     Indication: PRODUCT USED FOR UNKNOWN INDICATION
  14. MULTIVITAMIN [Concomitant]
     Indication: PRODUCT USED FOR UNKNOWN INDICATION
  15. NIACIN [Concomitant]
     Indication: PRODUCT USED FOR UNKNOWN INDICATION
  16. FLONASE [Concomitant]
     Indication: PRODUCT USED FOR UNKNOWN INDICATION

REACTIONS (1)
  - Injection site pain [Not Recovered/Not Resolved]
